FAERS Safety Report 9166413 (Version 5)
Quarter: 2013Q4

REPORT INFORMATION
  Report Type: Report from Study
  Country: NL (occurrence: NL)
  Receive Date: 20130315
  Receipt Date: 20131101
  Transmission Date: 20140711
  Serious: Yes (Death, Life-Threatening, Hospitalization, Disabling, Other)
  Sender: FDA-Public Use
  Company Number: PHHO2013NL001655

PATIENT
  Sex: 0

DRUGS (4)
  1. CERTICAN [Suspect]
     Indication: RENAL TRANSPLANT
     Dosage: 6 MG, BID
     Route: 048
     Dates: start: 20120725, end: 20130707
  2. PROGRAF [Suspect]
     Indication: RENAL TRANSPLANT
     Dosage: UNK
     Dates: start: 20120516
  3. PREDNISOLONE [Concomitant]
     Dosage: 30 MG, QD
     Dates: start: 20120516, end: 20130707
  4. MYFORTIC [Concomitant]
     Indication: RENAL TRANSPLANT
     Dosage: 540 MG, BID
     Dates: start: 20120516, end: 20130202

REACTIONS (12)
  - Oedema [Unknown]
  - Venous thrombosis limb [Recovering/Resolving]
  - Renal impairment [Fatal]
  - Dehydration [Fatal]
  - Pneumonia [Fatal]
  - Pneumocystis jirovecii pneumonia [Recovering/Resolving]
  - Dyspnoea [Unknown]
  - Cerebrovascular accident [Not Recovered/Not Resolved]
  - Herpes simplex [Recovered/Resolved]
  - Atrial fibrillation [Recovering/Resolving]
  - Oliguria [Recovered/Resolved]
  - Skin ulcer [Not Recovered/Not Resolved]
